FAERS Safety Report 18371163 (Version 1)
Quarter: 2020Q4

REPORT INFORMATION
  Report Type: Spontaneous
  Country: US (occurrence: US)
  Receive Date: 20201012
  Receipt Date: 20201012
  Transmission Date: 20210114
  Serious: Yes (Other)
  Sender: FDA-Public Use
  Company Number: US-BAYER-2020-212685

PATIENT
  Sex: Female

DRUGS (2)
  1. PARACETAMOL [Suspect]
     Active Substance: ACETAMINOPHEN
  2. ACETAZOLAMIDE. [Suspect]
     Active Substance: ACETAZOLAMIDE

REACTIONS (11)
  - Metabolic acidosis [None]
  - Neonatal tachypnoea [Recovered/Resolved]
  - Grunting [Recovered/Resolved]
  - Foetal exposure during pregnancy [None]
  - Sepsis neonatal [Recovered/Resolved]
  - Neonatal respiratory distress [Recovered/Resolved]
  - Use of accessory respiratory muscles [Recovered/Resolved]
  - Nervous system disorder [Recovered/Resolved]
  - Meconium aspiration syndrome [Recovered/Resolved]
  - Dyspnoea [Recovered/Resolved]
  - Nasal flaring [Recovered/Resolved]
